FAERS Safety Report 4915889-7 (Version None)
Quarter: 2006Q1

REPORT INFORMATION
  Report Type: 
  Country: None (occurrence: None)
  Receive Date: 20060214
  Receipt Date: 20060210
  Transmission Date: 20060701
  Serious: Yes (Hospitalization)
  Sender: FDA-Public Use
  Company Number: CHWYE381010FEB06

PATIENT
  Sex: Female

DRUGS (4)
  1. EFFEXOR [Suspect]
     Indication: SCHIZOAFFECTIVE DISORDER
  2. AMISULPRIDE (AMISULPRIDE, , 0) [Suspect]
     Indication: SCHIZOAFFECTIVE DISORDER
  3. HALOPERIDOL [Suspect]
  4. LITHIUM CARBONATE [Concomitant]

REACTIONS (4)
  - ANTICHOLINERGIC SYNDROME [None]
  - DRY MOUTH [None]
  - MYDRIASIS [None]
  - SINUS TACHYCARDIA [None]
